FAERS Safety Report 5530077-1 (Version None)
Quarter: 2007Q4

REPORT INFORMATION
  Report Type: 
  Country: None (occurrence: None)
  Receive Date: 20071119
  Receipt Date: 20070731
  Transmission Date: 20080405
  Serious: No
  Sender: FDA-Public Use
  Company Number: TPA2007A01505

PATIENT
  Age: 69 Year
  Sex: Female
  Weight: 48.0813 kg

DRUGS (4)
  1. ROZEREM [Suspect]
     Indication: INSOMNIA
     Dosage: 8 MG, PRN QHS, PER ORAL
     Route: 048
     Dates: start: 20070629, end: 20070701
  2. PREMARIN [Concomitant]
  3. SYNTHROID [Concomitant]
  4. MULTIVITAMIN [Concomitant]

REACTIONS (4)
  - FATIGUE [None]
  - PAIN [None]
  - POOR QUALITY SLEEP [None]
  - SENSORY DISTURBANCE [None]
